FAERS Safety Report 10671485 (Version 1)
Quarter: 2014Q4

REPORT INFORMATION
  Report Type: Spontaneous
  Country: US (occurrence: None)
  Receive Date: 20141222
  Receipt Date: 20141222
  Transmission Date: 20150529
  Serious: No
  Sender: FDA-Public Use
  Company Number: None

PATIENT
  Age: 50 Year
  Sex: Female
  Weight: 68.04 kg

DRUGS (1)
  1. HUMIRA [Suspect]
     Active Substance: ADALIMUMAB
     Indication: CROHN^S DISEASE
     Dosage: EVERY 2 WEEKS, INJECTED UNDER SKIN
     Dates: start: 20140804, end: 20141018

REACTIONS (10)
  - Gastroenteritis viral [None]
  - Burning sensation [None]
  - Acne [None]
  - Skin discolouration [None]
  - Lacrimation increased [None]
  - Lacrimal disorder [None]
  - Ophthalmic herpes simplex [None]
  - Rash [None]
  - Infection [None]
  - Upper respiratory tract infection [None]

NARRATIVE: CASE EVENT DATE: 20141206
